FAERS Safety Report 8811070 (Version 1)
Quarter: 2012Q4

REPORT INFORMATION
  Report Type: Spontaneous
  Country: US (occurrence: None)
  Receive Date: 20120924
  Receipt Date: 20120924
  Transmission Date: 20130627
  Serious: Yes (Other)
  Sender: FDA-Public Use
  Company Number: 2012P1057122

PATIENT
  Age: 22 Year
  Sex: Female

DRUGS (1)
  1. LITHIUM [Suspect]
     Indication: BIPOLAR DISORDER

REACTIONS (1)
  - Nephrectasia [None]
